FAERS Safety Report 19313232 (Version 1)
Quarter: 2021Q2

REPORT INFORMATION
  Report Type: Report from Study
  Country: US (occurrence: US)
  Receive Date: 20210527
  Receipt Date: 20210527
  Transmission Date: 20210717
  Serious: Yes (Hospitalization)
  Sender: FDA-Public Use
  Company Number: US-GILEAD-2021-0532884

PATIENT
  Age: 12 Year
  Sex: Female

DRUGS (16)
  1. ADVAIR HFA [Concomitant]
     Active Substance: FLUTICASONE PROPIONATE\SALMETEROL XINAFOATE
  2. LANSOPRAZOLE. [Concomitant]
     Active Substance: LANSOPRAZOLE
  3. TOBI PODHALER [Concomitant]
     Active Substance: TOBRAMYCIN
  4. ALBUTEROL [SALBUTAMOL SULFATE] [Concomitant]
     Active Substance: ALBUTEROL SULFATE
  5. PEPCID [Concomitant]
     Active Substance: FAMOTIDINE
  6. TRIKAFTA [Concomitant]
     Active Substance: ELEXACAFTOR\IVACAFTOR\TEZACAFTOR
  7. PULMOZYME [Concomitant]
     Active Substance: DORNASE ALFA
  8. AZTREONAM LYSINE [Suspect]
     Active Substance: AZTREONAM LYSINE
     Indication: CYSTIC FIBROSIS LUNG
     Dosage: 75 MG, Q8H, ALTERNATE 28D ON AND 28D OFF
     Route: 055
     Dates: start: 20180317
  9. FLUTICASONE. [Concomitant]
     Active Substance: FLUTICASONE
  10. ZENPEP [Concomitant]
     Active Substance: PANCRELIPASE AMYLASE\PANCRELIPASE LIPASE\PANCRELIPASE PROTEASE
  11. HYPERSAL [Concomitant]
     Active Substance: SODIUM CHLORIDE
  12. RELIZORB [Concomitant]
  13. AZITHROMYCIN ANHYDROUS. [Concomitant]
     Active Substance: AZITHROMYCIN ANHYDROUS
  14. MVW COMPLETE FORMULATION D3000 [Concomitant]
     Active Substance: VITAMINS\ZINC
  15. REGLAN [Concomitant]
     Active Substance: METOCLOPRAMIDE HYDROCHLORIDE
  16. VITAMIN A [RETINOL] [Concomitant]
     Active Substance: RETINOL

REACTIONS (2)
  - Cystic fibrosis respiratory infection suppression [Unknown]
  - Product use issue [Unknown]

NARRATIVE: CASE EVENT DATE: 20210505
